FAERS Safety Report 16547778 (Version 4)
Quarter: 2020Q1

REPORT INFORMATION
  Report Type: Spontaneous
  Country: US (occurrence: US)
  Receive Date: 20190709
  Receipt Date: 20200210
  Transmission Date: 20200409
  Serious: Yes (Disabling)
  Sender: FDA-Public Use
  Company Number: US-SA-2019SA178266

PATIENT
  Age: 47 Year
  Sex: Female

DRUGS (1)
  1. DUPIXENT [Suspect]
     Active Substance: DUPILUMAB
     Indication: DERMATITIS ATOPIC
     Dosage: 300 MG, QOW
     Route: 058
     Dates: start: 20190502, end: 201912

REACTIONS (7)
  - Cough [Unknown]
  - Wheezing [Unknown]
  - Skin fissures [Not Recovered/Not Resolved]
  - Product dose omission [Not Recovered/Not Resolved]
  - Impaired work ability [Not Recovered/Not Resolved]
  - Hypersensitivity [Unknown]
  - Dry eye [Unknown]

NARRATIVE: CASE EVENT DATE: 20190615
